FAERS Safety Report 14007170 (Version 1)
Quarter: 2017Q3

REPORT INFORMATION
  Report Type: Spontaneous
  Country: US (occurrence: US)
  Receive Date: 20170925
  Receipt Date: 20170925
  Transmission Date: 20171128
  Serious: Yes (Hospitalization)
  Sender: FDA-Public Use
  Company Number: US-AUROBINDO-AUR-APL-2017-40521

PATIENT
  Sex: Female

DRUGS (1)
  1. CEFDINIR CAPSULES 300 MG [Suspect]
     Active Substance: CEFDINIR
     Indication: PNEUMONIA
     Dosage: 300 MG, TWO TIMES A DAY
     Route: 048
     Dates: start: 201708, end: 201708

REACTIONS (1)
  - Fluid retention [Recovering/Resolving]

NARRATIVE: CASE EVENT DATE: 2017
